FAERS Safety Report 5406483-2 (Version None)
Quarter: 2007Q3

REPORT INFORMATION
  Report Type: 
  Country: None (occurrence: None)
  Receive Date: 20070806
  Receipt Date: 20070723
  Transmission Date: 20080115
  Serious: Yes (Other)
  Sender: FDA-Public Use
  Company Number: US-ELI_LILLY_AND_COMPANY-US200707005458

PATIENT
  Sex: Female

DRUGS (3)
  1. EVISTA [Suspect]
     Indication: OSTEOPENIA
     Dosage: 60 MG, UNK
     Route: 048
     Dates: start: 20010101, end: 20060101
  2. EVISTA [Suspect]
     Dosage: 60 MG, UNK
     Route: 048
     Dates: start: 20070101
  3. BETIMOL [Concomitant]

REACTIONS (6)
  - CATARACT [None]
  - GLAUCOMA [None]
  - INTERVERTEBRAL DISC DISORDER [None]
  - MACULAR DEGENERATION [None]
  - OSTEOPOROSIS [None]
  - ROTATOR CUFF SYNDROME [None]
